FAERS Safety Report 12181487 (Version 8)
Quarter: 2016Q3

REPORT INFORMATION
  Report Type: Report from Study
  Country: US (occurrence: US)
  Receive Date: 20160315
  Receipt Date: 20160713
  Transmission Date: 20161109
  Serious: Yes (Death, Hospitalization, Other)
  Sender: FDA-Public Use
  Company Number: US-ACTELION-A-US2015-119458

PATIENT
  Age: 70 Year
  Sex: Female

DRUGS (9)
  1. VELETRI [Suspect]
     Active Substance: EPOPROSTENOL
     Dosage: 37 NG/KG, PER MIN
     Route: 042
     Dates: start: 20150604
  2. VELETRI [Suspect]
     Active Substance: EPOPROSTENOL
     Indication: PULMONARY ARTERIAL HYPERTENSION
     Dosage: 13 NG/KG, PER MIN
     Route: 042
     Dates: start: 20150604
  3. AMIODARONE [Suspect]
     Active Substance: AMIODARONE
     Indication: PRODUCT USED FOR UNKNOWN INDICATION
     Dosage: 37 NG/KG, PER MIN
     Route: 065
     Dates: start: 20150604
  4. VELETRI [Suspect]
     Active Substance: EPOPROSTENOL
     Dosage: 37 NG/KG, PER MIN
     Route: 042
  5. ADCIRCA [Concomitant]
     Active Substance: TADALAFIL
  6. LETAIRIS [Concomitant]
     Active Substance: AMBRISENTAN
  7. XARELTO [Concomitant]
     Active Substance: RIVAROXABAN
  8. CIALIS [Concomitant]
     Active Substance: TADALAFIL
  9. DIGOXIN. [Concomitant]
     Active Substance: DIGOXIN

REACTIONS (25)
  - Oxygen saturation decreased [Unknown]
  - Weight decreased [Unknown]
  - Death [Fatal]
  - Fluid retention [Unknown]
  - Tremor [Unknown]
  - Oedema [Unknown]
  - Catheter management [Unknown]
  - Pain in jaw [Unknown]
  - Head discomfort [Unknown]
  - Decreased appetite [Unknown]
  - Headache [Unknown]
  - Lung disorder [Unknown]
  - Nasal pruritus [Unknown]
  - Gout [Unknown]
  - Catheter placement [Unknown]
  - Heart rate increased [Unknown]
  - Dyspnoea [Unknown]
  - Pulmonary arterial hypertension [Unknown]
  - Cardiac failure congestive [Unknown]
  - Rash erythematous [Unknown]
  - Rash [Unknown]
  - Palpitations [Unknown]
  - Atrial fibrillation [Unknown]
  - Diarrhoea [Unknown]
  - Productive cough [Unknown]

NARRATIVE: CASE EVENT DATE: 20160710
